FAERS Safety Report 6690110-0 (Version None)
Quarter: 2010Q2

REPORT INFORMATION
  Report Type: 
  Country: None (occurrence: None)
  Receive Date: 20100421
  Receipt Date: 20100414
  Transmission Date: 20101027
  Serious: Yes (Hospitalization)
  Sender: FDA-Public Use
  Company Number: PHHO2009IT14402

PATIENT
  Sex: Male
  Weight: 82 kg

DRUGS (1)
  1. EXELON [Suspect]
     Indication: DEMENTIA
     Dosage: 3MG
     Route: 048
     Dates: start: 20090213

REACTIONS (5)
  - ANGINA PECTORIS [None]
  - ARTERIOSCLEROSIS [None]
  - CHEST PAIN [None]
  - EMPHYSEMA [None]
  - PALLOR [None]
